FAERS Safety Report 16548801 (Version 1)
Quarter: 2019Q3

REPORT INFORMATION
  Report Type: Spontaneous
  Country: US (occurrence: US)
  Receive Date: 20190709
  Receipt Date: 20190709
  Transmission Date: 20191004
  Serious: Yes (Hospitalization)
  Sender: FDA-Public Use
  Company Number: PHHY2019US153994

PATIENT
  Age: 88 Year
  Sex: Male

DRUGS (1)
  1. AMIODARONE [Suspect]
     Active Substance: AMIODARONE
     Indication: PRODUCT USED FOR UNKNOWN INDICATION
     Dosage: 100 MG, QD
     Route: 065
     Dates: start: 2012

REACTIONS (15)
  - Back pain [Unknown]
  - Orchitis [Unknown]
  - Hyperaemia [Unknown]
  - Escherichia infection [Unknown]
  - Dizziness [Unknown]
  - Weight decreased [Unknown]
  - Testicular pain [Recovering/Resolving]
  - Pain in extremity [Unknown]
  - Testicular swelling [Recovering/Resolving]
  - Arthralgia [Unknown]
  - Asthenia [Unknown]
  - Hydrocele [Unknown]
  - Decreased appetite [Unknown]
  - Blood creatinine increased [Unknown]
  - Erythema [Unknown]
